FAERS Safety Report 16070201 (Version 1)
Quarter: 2019Q1

REPORT INFORMATION
  Report Type: Report from Study
  Country: None (occurrence: CA)
  Receive Date: 20190314
  Receipt Date: 20190314
  Transmission Date: 20190418
  Serious: Yes (Other)
  Sender: FDA-Public Use
  Company Number: CA-ABBVIE-19K-028-2699363-00

PATIENT
  Age: 68 Year
  Sex: Female

DRUGS (1)
  1. HUMIRA [Suspect]
     Active Substance: ADALIMUMAB
     Indication: CROHN^S DISEASE
     Route: 058

REACTIONS (5)
  - Gastrointestinal motility disorder [Not Recovered/Not Resolved]
  - Large intestine polyp [Not Recovered/Not Resolved]
  - Macular degeneration [Not Recovered/Not Resolved]
  - Glaucoma [Not Recovered/Not Resolved]
  - Colitis [Not Recovered/Not Resolved]

NARRATIVE: CASE EVENT DATE: 20190111
